FAERS Safety Report 26116727 (Version 1)
Quarter: 2025Q4

REPORT INFORMATION
  Report Type: Spontaneous
  Country: US (occurrence: US)
  Receive Date: 20251203
  Receipt Date: 20251203
  Transmission Date: 20260118
  Serious: Yes (Other)
  Sender: IPSEN BIOPHARMACEUTICALS, INC.
  Company Number: US-IPSEN Group, Research and Development-2025-29485

PATIENT
  Sex: Female

DRUGS (10)
  1. IQIRVO [Suspect]
     Active Substance: ELAFIBRANOR
     Indication: Primary biliary cholangitis
     Route: 048
  2. BOTOX [Concomitant]
     Active Substance: ONABOTULINUMTOXINA
     Dosage: BOTOX 100 UNIT VIAL
  3. NURTEC ODT [Concomitant]
     Active Substance: RIMEGEPANT SULFATE
     Dosage: NURTEC ODT 75 MG TAB RAPDIS
  4. MAGNESIUM GLYCINATE [Concomitant]
     Active Substance: MAGNESIUM GLYCINATE
  5. FISH OIL [Concomitant]
     Active Substance: FISH OIL
  6. TIROSINT [Concomitant]
     Active Substance: LEVOTHYROXINE SODIUM
  7. ESTRADIOL [Concomitant]
     Active Substance: ESTRADIOL
  8. CALCIUM\CHOLECALCIFEROL [Concomitant]
     Active Substance: CALCIUM\CHOLECALCIFEROL
     Dosage: 600MG-12.5 TABLET ER
  9. XOLAIR [Concomitant]
     Active Substance: OMALIZUMAB
     Dosage: 300 MG/2ML AUTO INJCT
  10. QULIPTA [Concomitant]
     Active Substance: ATOGEPANT

REACTIONS (2)
  - Sjogren^s syndrome [Unknown]
  - Coeliac disease [Unknown]
